FAERS Safety Report 11638250 (Version 2)
Quarter: 2015Q4

REPORT INFORMATION
  Report Type: Spontaneous
  Country: US (occurrence: US)
  Receive Date: 20151016
  Receipt Date: 20151109
  Transmission Date: 20160304
  Serious: No
  Sender: FDA-Public Use
  Company Number: US-TEVA-601193ACC

PATIENT
  Age: 24 Year
  Sex: Female
  Weight: 89.44 kg

DRUGS (2)
  1. PLAN B ONE-STEP [Suspect]
     Active Substance: LEVONORGESTREL
     Indication: POST COITAL CONTRACEPTION
     Dates: start: 20151001, end: 20151001
  2. NHA-THUOC- HOA-DA [Concomitant]
     Indication: WEIGHT DECREASED
     Dates: start: 20150901

REACTIONS (2)
  - Dysmenorrhoea [Not Recovered/Not Resolved]
  - Vaginal haemorrhage [Not Recovered/Not Resolved]

NARRATIVE: CASE EVENT DATE: 20151005
